FAERS Safety Report 9145484 (Version 1)
Quarter: 2013Q1

REPORT INFORMATION
  Report Type: Spontaneous
  Country: US (occurrence: None)
  Receive Date: 20130226
  Receipt Date: 20130226
  Transmission Date: 20140127
  Serious: Yes (Other)
  Sender: FDA-Public Use
  Company Number: None

PATIENT
  Age: 69 Year
  Sex: Female

DRUGS (1)
  1. FORTEO 600 MCG/2.4ML PEN ELI LILLY + COMPANY [Suspect]
     Indication: OSTEOPOROSIS
     Route: 058
     Dates: start: 201204, end: 20130201

REACTIONS (3)
  - Blood creatinine increased [None]
  - Blood urine present [None]
  - Protein urine present [None]
